FAERS Safety Report 20319821 (Version 2)
Quarter: 2022Q1

REPORT INFORMATION
  Report Type: Spontaneous
  Country: ES (occurrence: ES)
  Receive Date: 20220111
  Receipt Date: 20220118
  Transmission Date: 20220423
  Serious: Yes (Life-Threatening, Hospitalization, Other)
  Sender: FDA-Public Use
  Company Number: ES-AEMPS-1078092

PATIENT
  Age: 42 Year
  Sex: Female

DRUGS (2)
  1. CLOZAPINE [Interacting]
     Active Substance: CLOZAPINE
     Indication: Product used for unknown indication
     Dosage: UNK
     Route: 048
     Dates: start: 20211227, end: 20211227
  2. DIAZEPAM [Interacting]
     Active Substance: DIAZEPAM
     Indication: Product used for unknown indication
     Dosage: UNK
     Route: 048
     Dates: start: 20211227, end: 20211227

REACTIONS (1)
  - Coma [Recovering/Resolving]

NARRATIVE: CASE EVENT DATE: 20211227
